FAERS Safety Report 9741175 (Version 7)
Quarter: 2014Q2

REPORT INFORMATION
  Report Type: Spontaneous
  Country: US (occurrence: US)
  Receive Date: 20131209
  Receipt Date: 20140424
  Transmission Date: 20141212
  Serious: Yes (Hospitalization, Other)
  Sender: FDA-Public Use
  Company Number: US-VERTEX PHARMACEUTICALS INC-2013-011659

PATIENT
  Age: 57 Year
  Sex: Male
  Weight: 86 kg

DRUGS (8)
  1. INCIVEK [Suspect]
     Indication: HEPATITIS C
     Dosage: 750 MG, TID
     Route: 048
     Dates: start: 20131028, end: 20131210
  2. RIBAVIRIN [Suspect]
     Indication: HEPATITIS C
     Dosage: 600 MG, BID
     Route: 048
     Dates: start: 20131028, end: 20131210
  3. PEGASYS [Suspect]
     Indication: HEPATITIS C
     Dosage: 180 ?G, QW
     Route: 058
     Dates: start: 20131028, end: 20131210
  4. LISINOPRIL [Concomitant]
     Indication: HYPERTENSION
     Dosage: UNK, QD
     Route: 048
  5. LIPITOR [Concomitant]
     Indication: BLOOD CHOLESTEROL INCREASED
     Dosage: UNK, QD
     Route: 048
  6. VALIUM [Concomitant]
     Indication: ANXIETY
     Dosage: UNK, PRN
     Route: 048
  7. CARDIVAL [Concomitant]
     Indication: HYPERTENSION
     Dosage: UNK, PRN
     Route: 048
  8. ASA [Concomitant]
     Indication: STENT PLACEMENT
     Dosage: 81 MG, QD
     Route: 048

REACTIONS (27)
  - Suicidal ideation [Recovered/Resolved]
  - Rash generalised [Not Recovered/Not Resolved]
  - Chest pain [Recovered/Resolved]
  - Depression [Not Recovered/Not Resolved]
  - Dizziness [Not Recovered/Not Resolved]
  - Influenza like illness [Recovered/Resolved]
  - Dehydration [Recovered/Resolved]
  - Anger [Recovered/Resolved]
  - Agitation [Not Recovered/Not Resolved]
  - Weight decreased [Not Recovered/Not Resolved]
  - Pallor [Recovered/Resolved]
  - Sinus disorder [Not Recovered/Not Resolved]
  - Dyspepsia [Recovered/Resolved]
  - Sleep disorder [Not Recovered/Not Resolved]
  - Frustration [Recovered/Resolved]
  - Skeletal injury [Not Recovered/Not Resolved]
  - Movement disorder [Not Recovered/Not Resolved]
  - Anxiety [Not Recovered/Not Resolved]
  - Fall [Recovering/Resolving]
  - Dry mouth [Recovered/Resolved]
  - Arthralgia [Not Recovered/Not Resolved]
  - Memory impairment [Not Recovered/Not Resolved]
  - Asthenia [Not Recovered/Not Resolved]
  - Fatigue [Not Recovered/Not Resolved]
  - Anorectal discomfort [Recovered/Resolved]
  - Anal pruritus [Recovered/Resolved]
  - Diarrhoea [Recovered/Resolved]
